FAERS Safety Report 26155746 (Version 1)
Quarter: 2025Q4

REPORT INFORMATION
  Report Type: Spontaneous
  Country: US (occurrence: US)
  Receive Date: 20251215
  Receipt Date: 20251215
  Transmission Date: 20260118
  Serious: Yes (Hospitalization)
  Sender: ALKEM
  Company Number: US-ALKEM LABORATORIES LIMITED-US-ALKEM-2025-05703

PATIENT
  Age: 15 Year
  Sex: Female

DRUGS (1)
  1. TACROLIMUS [Suspect]
     Active Substance: TACROLIMUS
     Indication: Liver transplant
     Dosage: 0.5 MILLIGRAM
     Route: 060
     Dates: start: 202503, end: 202503

REACTIONS (4)
  - Drug level below therapeutic [Recovered/Resolved]
  - Hepatic enzyme increased [Recovered/Resolved]
  - Product substitution issue [Recovered/Resolved]
  - Therapeutic response decreased [Recovered/Resolved]
